FAERS Safety Report 8864966 (Version 1)
Quarter: 2012Q4

REPORT INFORMATION
  Report Type: 
  Country: US (occurrence: US)
  Receive Date: 20121024
  Receipt Date: 20121024
  Transmission Date: 20130627
  Serious: No
  Sender: FDA-Public Use
  Company Number: US-AMGEN-USASP2012000647

PATIENT
  Age: 62 Year
  Sex: Female
  Weight: 24.94 kg

DRUGS (8)
  1. ENBREL [Suspect]
     Indication: PRODUCT USED FOR UNKNOWN INDICATION
     Dosage: 50 mg, qwk
     Route: 058
  2. FLONASE [Concomitant]
     Dosage: 0.05 %, UNK
  3. FINACEA [Concomitant]
     Dosage: 15 %, UNK
  4. CALCIUM [Concomitant]
     Dosage: 1000 DF, UNK
  5. FOLIC ACID [Concomitant]
  6. MULTIVITAMIN [Concomitant]
  7. ACETAMINOPHEN SUS [Concomitant]
     Dosage: 650 mg, UNK
  8. METHOTREXATE [Concomitant]
     Dosage: 2.5 mg, UNK

REACTIONS (1)
  - Nasopharyngitis [Unknown]
